FAERS Safety Report 7590845-1 (Version None)
Quarter: 2011Q3

REPORT INFORMATION
  Report Type: 
  Country: None (occurrence: None)
  Receive Date: 20110705
  Receipt Date: 20110623
  Transmission Date: 20111222
  Serious: Yes (Death, Other)
  Sender: FDA-Public Use
  Company Number: PHHY2011CA17833

PATIENT
  Sex: Female

DRUGS (1)
  1. AFINITOR [Suspect]
     Indication: METASTATIC RENAL CELL CARCINOMA
     Dosage: 10 MG, DAILY
     Route: 048
     Dates: start: 20110126, end: 20110201

REACTIONS (6)
  - PNEUMONITIS [None]
  - HYPOXIA [None]
  - DEATH [None]
  - PLEURAL EFFUSION [None]
  - RESPIRATORY DISORDER [None]
  - DYSPNOEA [None]
